FAERS Safety Report 14114925 (Version 1)
Quarter: 2017Q4

REPORT INFORMATION
  Report Type: Spontaneous
  Country: US (occurrence: US)
  Receive Date: 20171023
  Receipt Date: 20171023
  Transmission Date: 20180321
  Serious: No
  Sender: FDA-Public Use
  Company Number: US-LNK INTERNATIONAL, INC.-2031154

PATIENT
  Age: 64 Year
  Sex: Female

DRUGS (3)
  1. RABEPRAZOLE [Concomitant]
     Active Substance: RABEPRAZOLE
  2. IBUPROFEN. [Suspect]
     Active Substance: IBUPROFEN
     Indication: PROCEDURAL PAIN
  3. ATORVASTATIN [Concomitant]
     Active Substance: ATORVASTATIN

REACTIONS (3)
  - Rash [None]
  - Urticaria [None]
  - Pruritus [None]
